FAERS Safety Report 5788591-X (Version None)
Quarter: 2008Q2

REPORT INFORMATION
  Report Type: 
  Country: None (occurrence: None)
  Receive Date: 20080626
  Receipt Date: 20080403
  Transmission Date: 20081010
  Serious: No
  Sender: FDA-Public Use
  Company Number: US-BAYER-200819199NA

PATIENT
  Age: 56 Year
  Sex: Female
  Weight: 54 kg

DRUGS (3)
  1. MENOSTAR [Suspect]
     Indication: HOT FLUSH
     Route: 062
  2. CALCIUM [Concomitant]
  3. ASPIRIN [Concomitant]

REACTIONS (1)
  - BLOOD PRESSURE INCREASED [None]
